FAERS Safety Report 4780104-4 (Version None)
Quarter: 2005Q3

REPORT INFORMATION
  Report Type: 
  Country: None (occurrence: None)
  Receive Date: 20050927
  Receipt Date: 20050922
  Transmission Date: 20060218
  Serious: Yes (Death, Other)
  Sender: FDA-Public Use
  Company Number: PHEH2005US10580

PATIENT
  Age: 62 Year
  Sex: Male
  Weight: 49 kg

DRUGS (1)
  1. ZOMETA [Suspect]
     Dosage: 4MG UNK
     Route: 042

REACTIONS (2)
  - ASEPTIC NECROSIS BONE [None]
  - DEATH [None]
